FAERS Safety Report 25771270 (Version 1)
Quarter: 2025Q3

REPORT INFORMATION
  Report Type: Spontaneous
  Country: US (occurrence: US)
  Receive Date: 20250908
  Receipt Date: 20250908
  Transmission Date: 20251021
  Serious: No
  Sender: DOMPE FARMACEUTICI
  Company Number: US-FARMAPROD-202504-1181

PATIENT
  Age: 89 Year
  Sex: Male

DRUGS (3)
  1. OXERVATE [Suspect]
     Active Substance: CENEGERMIN-BKBJ
     Indication: Neurotrophic keratopathy
     Route: 047
     Dates: start: 20250325
  2. ALBUTEROL SULFATE [Concomitant]
     Active Substance: ALBUTEROL SULFATE
  3. artificial tears [Concomitant]

REACTIONS (5)
  - Fatigue [Recovered/Resolved]
  - Eye pain [Unknown]
  - Lacrimation increased [Unknown]
  - Eye swelling [Unknown]
  - Eye irritation [Unknown]

NARRATIVE: CASE EVENT DATE: 20250409
